FAERS Safety Report 13673877 (Version 1)
Quarter: 2017Q2

REPORT INFORMATION
  Report Type: Spontaneous
  Country: US (occurrence: US)
  Receive Date: 20170621
  Receipt Date: 20170621
  Transmission Date: 20170830
  Serious: Yes (Hospitalization)
  Sender: FDA-Public Use
  Company Number: US-LPDUSPRD-20170796

PATIENT
  Age: 68 Year
  Sex: Female

DRUGS (3)
  1. DEXAMETHASONE SODIUM PHOSPHATE INJECTION, USP (4901-25) [Suspect]
     Active Substance: DEXAMETHASONE SODIUM PHOSPHATE
     Dosage: DOSE NOT PROVIDED
     Route: 065
  2. BORTEZOMIB [Suspect]
     Active Substance: BORTEZOMIB
     Dosage: DOSE NOT PROVIDED
     Route: 065
  3. THALIDOMIDE [Suspect]
     Active Substance: THALIDOMIDE
     Dosage: DOSE NOT PROVIDED
     Route: 065

REACTIONS (13)
  - Hemiplegia [Unknown]
  - Pneumonia parainfluenzae viral [Unknown]
  - Urinary tract infection [Unknown]
  - Nocardiosis [Not Recovered/Not Resolved]
  - White blood cell count decreased [Recovered/Resolved]
  - Pneumonia bacterial [Unknown]
  - Platelet count decreased [Unknown]
  - Bronchopulmonary aspergillosis [Unknown]
  - Atrial fibrillation [Unknown]
  - Encephalopathy [Unknown]
  - Dysarthria [Recovered/Resolved with Sequelae]
  - Haemoglobin decreased [Unknown]
  - Pneumatosis intestinalis [Unknown]
